FAERS Safety Report 5467243-X (Version None)
Quarter: 2007Q3

REPORT INFORMATION
  Report Type: 
  Country: None (occurrence: None)
  Receive Date: 20070925
  Receipt Date: 20070918
  Transmission Date: 20080115
  Serious: Yes (Hospitalization, Other)
  Sender: FDA-Public Use
  Company Number: US-ALLERGAN-0702158US

PATIENT
  Sex: Male

DRUGS (2)
  1. BOTOX [Suspect]
     Indication: PAIN
     Dosage: 400 UNITS, SINGLE
     Route: 030
     Dates: start: 20070206, end: 20070206
  2. BOTOX [Suspect]
     Indication: DYSTONIA

REACTIONS (14)
  - ANXIETY [None]
  - BLOOD PRESSURE INCREASED [None]
  - DIZZINESS [None]
  - DYSARTHRIA [None]
  - DYSPHAGIA [None]
  - DYSPHONIA [None]
  - DYSPNOEA [None]
  - FATIGUE [None]
  - HEADACHE [None]
  - LYMPHOMA [None]
  - MALAISE [None]
  - MUSCLE SPASTICITY [None]
  - NECK PAIN [None]
  - PAIN IN EXTREMITY [None]
